FAERS Safety Report 5598880-X (Version None)
Quarter: 2008Q1

REPORT INFORMATION
  Report Type: 
  Country: None (occurrence: None)
  Receive Date: 20080122
  Receipt Date: 20080118
  Transmission Date: 20080703
  Serious: Yes (Disabling)
  Sender: FDA-Public Use
  Company Number: GB-RANBAXY-2008US-12706

PATIENT

DRUGS (8)
  1. ISOPTIN SR [Suspect]
     Indication: HYPERTENSION
     Dosage: 120 MG
     Dates: start: 20070726, end: 20071120
  2. VERAPAMIL [Concomitant]
     Indication: HYPERTENSION
     Dosage: 280 MG, QD
     Dates: start: 20061013, end: 20070726
  3. VERAPAMIL [Concomitant]
     Dosage: 360 MG, QD
     Dates: start: 20061013, end: 20070726
  4. ACETAMINOPHEN [Concomitant]
     Indication: PAIN
     Dosage: UNK,MG
     Dates: start: 20050101
  5. OMEPRAZOLE [Concomitant]
     Indication: DYSPEPSIA
     Dosage: UNK,MG
  6. SPIRONOLACTONE [Concomitant]
     Indication: HYPERTENSION
     Dosage: 12.5MG
     Dates: start: 20070118, end: 20070828
  7. SPIRONOLACTONE [Concomitant]
     Dosage: 25MG,OD
     Dates: start: 20070118, end: 20070828
  8. FUROSEMIDE [Concomitant]
     Indication: DRUG USE FOR UNKNOWN INDICATION
     Dosage: 20 MG, QD
     Dates: start: 20070828

REACTIONS (2)
  - MUSCULOSKELETAL STIFFNESS [None]
  - MYALGIA [None]
